FAERS Safety Report 4886271-6 (Version None)
Quarter: 2006Q1

REPORT INFORMATION
  Report Type: 
  Country: None (occurrence: None)
  Receive Date: 20060118
  Receipt Date: 20060118
  Transmission Date: 20060701
  Serious: Yes (Death)
  Sender: FDA-Public Use
  Company Number: None

PATIENT
  Age: 9 Month
  Sex: Male
  Weight: 8.1647 kg

DRUGS (1)
  1. CARBOFED DM DROPS  1MG/4MG/15MG/ML   HI-TECH PHARMACEUTICAL N.Y. [Suspect]
     Dosage: 0.075ML   PO
     Route: 048
     Dates: start: 20031201, end: 20031209

REACTIONS (1)
  - DEATH [None]
